FAERS Safety Report 4824266-9 (Version None)
Quarter: 2005Q4

REPORT INFORMATION
  Report Type: 
  Country: None (occurrence: None)
  Receive Date: 20051108
  Receipt Date: 20051026
  Transmission Date: 20060501
  Serious: Yes (Hospitalization, Other)
  Sender: FDA-Public Use
  Company Number: 2005147956

PATIENT
  Sex: Female
  Weight: 53.0709 kg

DRUGS (10)
  1. CELEBREX [Suspect]
     Indication: HEADACHE
     Dosage: ORAL
     Route: 048
  2. CELEBREX [Suspect]
     Indication: OSTEOPOROSIS
     Dosage: ORAL
     Route: 048
  3. LIPITOR [Suspect]
     Indication: ILL-DEFINED DISORDER
     Dosage: 40 MG (40 MG, 1 IN 1 D), ORAL
     Route: 048
     Dates: start: 20050201, end: 20050101
  4. FOSAMAX [Suspect]
     Indication: OSTEOPOROSIS
  5. CITRACAL (CALCIUM CITRATE) [Suspect]
     Indication: OSTEOPOROSIS
  6. ACTONEL [Suspect]
     Indication: OSTEOPOROSIS
     Dates: start: 20041201
  7. AGGRENOX [Suspect]
     Indication: ILL-DEFINED DISORDER
  8. IBUPROFEN [Concomitant]
  9. LEXAPRO [Concomitant]
  10. LISINOPRIL [Concomitant]

REACTIONS (15)
  - ANXIETY [None]
  - ASTHENIA [None]
  - CONDITION AGGRAVATED [None]
  - DIARRHOEA [None]
  - DYSPEPSIA [None]
  - DYSPHONIA [None]
  - FEELING ABNORMAL [None]
  - HEADACHE [None]
  - HYPOAESTHESIA [None]
  - MALAISE [None]
  - MIGRAINE [None]
  - MUSCLE ATROPHY [None]
  - OSTEOPOROSIS [None]
  - TRANSIENT ISCHAEMIC ATTACK [None]
  - VOMITING [None]
